FAERS Safety Report 4820655-7 (Version None)
Quarter: 2005Q4

REPORT INFORMATION
  Report Type: 
  Country: None (occurrence: None)
  Receive Date: 20051014
  Receipt Date: 20050907
  Transmission Date: 20060501
  Serious: No
  Sender: FDA-Public Use
  Company Number: 2005SP002686

PATIENT
  Age: 58 Year
  Sex: Female
  Weight: 74.8435 kg

DRUGS (15)
  1. LUNESTA [Suspect]
     Indication: INSOMNIA
     Dosage: 3 MG; HS; ORAL
     Route: 048
     Dates: start: 20050901, end: 20050901
  2. GLUCOPHAGE [Concomitant]
  3. LIBRAX [Concomitant]
  4. AMBIEN [Concomitant]
  5. MEPERIDINE [Concomitant]
  6. CITRUCEL [Concomitant]
  7. MILK OF MAGNESIA TAB [Concomitant]
  8. WARFARIN [Concomitant]
  9. LASIX [Concomitant]
  10. SYNTHROID [Concomitant]
  11. MUCINEX [Concomitant]
  12. THEOPHYLLINE [Concomitant]
  13. K-DUR 10 [Concomitant]
  14. ATORVASTATIN CALCIUM [Concomitant]
  15. PANTOPRAZOLE SODIUM [Concomitant]

REACTIONS (1)
  - DYSGEUSIA [None]
